FAERS Safety Report 8150427-X (Version None)
Quarter: 2012Q1

REPORT INFORMATION
  Report Type: 
  Country: None (occurrence: None)
  Receive Date: 20120220
  Receipt Date: 20120213
  Transmission Date: 20120608
  Serious: Yes (Hospitalization, Other)
  Sender: FDA-Public Use
  Company Number: US-BAYER-2011-075111

PATIENT
  Sex: Female
  Weight: 77.098 kg

DRUGS (5)
  1. OMEPRAZOLE [Concomitant]
     Dosage: UNK
     Dates: start: 20010101, end: 20110101
  2. YASMIN [Suspect]
     Indication: PREMENSTRUAL SYNDROME
  3. PREDNISONE [Concomitant]
     Dosage: UNK
     Dates: start: 20010101, end: 20110101
  4. YASMIN [Suspect]
     Indication: DYSMENORRHOEA
     Dosage: UNK
     Dates: start: 20050723, end: 20051031
  5. HYDROCODONE [Concomitant]
     Dosage: UNK
     Dates: start: 20010101, end: 20110101

REACTIONS (5)
  - THROMBOCYTOPENIA [None]
  - INJURY [None]
  - THROMBOSIS [None]
  - CEREBROVASCULAR ACCIDENT [None]
  - PAIN [None]
